FAERS Safety Report 10171944 (Version 3)
Quarter: 2014Q2

REPORT INFORMATION
  Report Type: Spontaneous
  Country: US (occurrence: US)
  Receive Date: 20140515
  Receipt Date: 20140630
  Transmission Date: 20141212
  Serious: No
  Sender: FDA-Public Use
  Company Number: US-PFIZER INC-2014129286

PATIENT
  Age: 62 Year
  Sex: Female
  Weight: 94.79 kg

DRUGS (15)
  1. LYRICA [Suspect]
     Indication: DIABETES MELLITUS
     Dosage: 50 MG, 2X/DAY
     Dates: start: 201404, end: 20140507
  2. ALLOPURINOL [Concomitant]
     Dosage: 300 MG, DAILY
  3. CRESTOR [Concomitant]
     Dosage: 10 MG, DAILY
  4. METFORMIN [Concomitant]
     Dosage: 1000 MG, 2X/DAY
  5. FERROUS GLUCONATE [Concomitant]
     Dosage: UNK, 2X/DAY
  6. NEXIUM [Concomitant]
     Dosage: 40 MG, 2X/DAY
  7. ATENOLOL [Concomitant]
     Dosage: 50 MG, 2X/DAY
  8. LISINOPRIL [Concomitant]
     Dosage: 20 MG, 2X/DAY
  9. SYNTHROID [Concomitant]
     Dosage: 100 MG, DAILY
  10. ZYRTEC [Concomitant]
     Indication: HYPERSENSITIVITY
     Dosage: 10 MG, DAILY
  11. PREVACID [Concomitant]
     Dosage: 50 MG, DAILY
  12. VITAMIN B12 [Concomitant]
     Dosage: UNK
  13. VITAMIN D [Concomitant]
     Dosage: UNK
  14. VITAMIN C [Concomitant]
     Dosage: UNK
  15. ASPIRIN [Concomitant]
     Dosage: 325 MG, DAILY

REACTIONS (3)
  - Drug hypersensitivity [Unknown]
  - Pruritus [Recovering/Resolving]
  - Rash generalised [Recovering/Resolving]
